FAERS Safety Report 5569388-2 (Version None)
Quarter: 2007Q4

REPORT INFORMATION
  Report Type: 
  Country: None (occurrence: None)
  Receive Date: 20071220
  Receipt Date: 20071217
  Transmission Date: 20080405
  Serious: Yes (Death, Hospitalization)
  Sender: FDA-Public Use
  Company Number: US-ASTRAZENECA-2007UW16922

PATIENT
  Age: 487 Month
  Sex: Male
  Weight: 168.2 kg

DRUGS (2)
  1. SEROQUEL [Suspect]
     Indication: SCHIZOPHRENIA
     Route: 048
     Dates: start: 20020101, end: 20060401
  2. PAXIL [Concomitant]

REACTIONS (6)
  - DIABETES MELLITUS [None]
  - HYPERTENSION [None]
  - HYPERTRIGLYCERIDAEMIA [None]
  - NEPHROLITHIASIS [None]
  - OBESITY [None]
  - WRIST FRACTURE [None]
